FAERS Safety Report 8474842-X (Version None)
Quarter: 2012Q2

REPORT INFORMATION
  Report Type: 
  Country: None (occurrence: None)
  Receive Date: 20120628
  Receipt Date: 20120625
  Transmission Date: 20120825
  Serious: Yes (Other)
  Sender: FDA-Public Use
  Company Number: IT-BRISTOL-MYERS SQUIBB COMPANY-16377608

PATIENT
  Age: 32 Year
  Sex: Male

DRUGS (4)
  1. CARBOPLATIN [Suspect]
     Indication: TESTIS CANCER
     Route: 042
     Dates: start: 20110923, end: 20111210
  2. BLEOMYCIN SULFATE [Suspect]
     Indication: TESTICULAR SEMINOMA (PURE)
     Route: 042
     Dates: start: 20110916, end: 20111210
  3. CISPLATIN [Suspect]
     Indication: TESTICULAR SEMINOMA (PURE)
     Dates: start: 20110916, end: 20111210
  4. VEPESID [Suspect]
     Indication: TESTICULAR SEMINOMA (PURE)
     Route: 042
     Dates: start: 20110916, end: 20111210

REACTIONS (4)
  - ASTHENIA [None]
  - NEUTROPENIA [None]
  - ALOPECIA [None]
  - VOMITING [None]
